FAERS Safety Report 14629936 (Version 2)
Quarter: 2020Q2

REPORT INFORMATION
  Report Type: Spontaneous
  Country: US (occurrence: US)
  Receive Date: 20180313
  Receipt Date: 20200406
  Transmission Date: 20200713
  Serious: Yes (Death, Hospitalization)
  Sender: FDA-Public Use
  Company Number: US-ASTRAZENECA-2018SE30248

PATIENT
  Age: 27271 Day
  Sex: Male
  Weight: 78.5 kg

DRUGS (22)
  1. METFORMIN [Concomitant]
     Active Substance: METFORMIN HYDROCHLORIDE
     Dates: start: 20120901
  2. ACETYL SALICYLIC ACID [Concomitant]
     Active Substance: ASPIRIN
     Dates: start: 20120901
  3. GLIPIZIDE. [Concomitant]
     Active Substance: GLIPIZIDE
     Dates: start: 20120901
  4. ATORVASTATIN [Concomitant]
     Active Substance: ATORVASTATIN
  5. BYETTA [Suspect]
     Active Substance: EXENATIDE
     Dosage: 10 MCG PEN
     Route: 065
     Dates: start: 20090420, end: 201503
  6. FENTANYL. [Concomitant]
     Active Substance: FENTANYL
     Dates: start: 20151203
  7. AMBIEN [Concomitant]
     Active Substance: ZOLPIDEM TARTRATE
     Dates: start: 20151203
  8. BYETTA [Suspect]
     Active Substance: EXENATIDE
     Dosage: 10 MCG PEN
     Route: 065
     Dates: start: 20121002
  9. ZOFRON [Concomitant]
     Active Substance: ONDANSETRON
     Dates: start: 20120901
  10. MELOXICAM. [Concomitant]
     Active Substance: MELOXICAM
     Dates: start: 20120901
  11. LANTUS [Concomitant]
     Active Substance: INSULIN GLARGINE
     Dates: start: 20120901
  12. LACTULOSE. [Concomitant]
     Active Substance: LACTULOSE
     Dates: start: 20151203
  13. MORPHINE SULFATE. [Concomitant]
     Active Substance: MORPHINE SULFATE
     Dates: start: 20151203
  14. ESCITALOPRAM OXALATE. [Concomitant]
     Active Substance: ESCITALOPRAM OXALATE
     Dates: start: 20151203
  15. FLUZONE [Concomitant]
     Active Substance: INFLUENZA A VIRUS A/CALIFORNIA/7/2009 X-179A (H1N1) ANTIGEN (FORMALDEHYDE INACTIVATED)\INFLUENZA A VIRUS A/VICTORIA/210/2009 X-187 (H3N2) ANTIGEN (FORMALDEHYDE INACTIVATED)\INFLUENZA B VIRUS B/BRISBANE/60/2008 ANTIGEN (FORMALDEHYDE INACTIVATED)
     Dates: start: 20151203
  16. ONDANSETRON [Concomitant]
     Active Substance: ONDANSETRON
     Dates: start: 20151203
  17. GEMZAR [Concomitant]
     Active Substance: GEMCITABINE HYDROCHLORIDE
     Dates: start: 20151203
  18. LOSARTAN. [Concomitant]
     Active Substance: LOSARTAN
     Dates: start: 20120901
  19. FENOFIBRATE. [Concomitant]
     Active Substance: FENOFIBRATE
     Dates: start: 20120901
  20. OMEPRAZOLE. [Concomitant]
     Active Substance: OMEPRAZOLE
     Dates: start: 20120901
  21. PROMETHAZINE [Concomitant]
     Active Substance: PROMETHAZINE HYDROCHLORIDE
     Dates: start: 20151203
  22. PROTONIX [Concomitant]
     Active Substance: PANTOPRAZOLE SODIUM
     Dates: start: 20120901

REACTIONS (1)
  - Pancreatic carcinoma metastatic [Fatal]

NARRATIVE: CASE EVENT DATE: 20150327
